FAERS Safety Report 10042507 (Version 1)
Quarter: 2014Q1

REPORT INFORMATION
  Report Type: Report from Study
  Country: US (occurrence: US)
  Receive Date: 20140327
  Receipt Date: 20140327
  Transmission Date: 20141002
  Serious: Yes (Hospitalization)
  Sender: FDA-Public Use
  Company Number: PHHO2014US004064

PATIENT
  Age: 12 Year
  Sex: Female
  Weight: 33.4 kg

DRUGS (8)
  1. STI571 [Suspect]
     Indication: NEUROFIBROMA
     Dosage: 400 MG, DAILY
     Route: 048
     Dates: start: 20130927, end: 20140309
  2. ZONISAMIDE [Suspect]
     Indication: CONVULSION
     Dosage: 100 MG, BID (50 MG AT BED TIME)
  3. LEVETIRACETAM [Concomitant]
     Indication: CONVULSION
     Dosage: 1000 MG, BID
  4. GABAPENTIN [Concomitant]
     Indication: PAIN
     Dosage: 100 MG, TID
  5. MULTIVITAMIN [Concomitant]
     Dosage: UNK
  6. ONDANSETRON [Concomitant]
     Indication: NAUSEA
     Dosage: 4 MG, PRN
  7. ALBUTEROL [Concomitant]
     Indication: DYSPNOEA
     Dosage: 1 DF, PRN
  8. PROAIR HFA [Concomitant]
     Indication: DYSPNOEA
     Dosage: 90 UG, PRN
     Route: 055

REACTIONS (1)
  - Liver function test abnormal [Not Recovered/Not Resolved]
